FAERS Safety Report 19177990 (Version 1)
Quarter: 2021Q2

REPORT INFORMATION
  Report Type: Spontaneous
  Country: US (occurrence: US)
  Receive Date: 20210426
  Receipt Date: 20210426
  Transmission Date: 20210717
  Serious: No
  Sender: FDA-Public Use
  Company Number: US-ELI_LILLY_AND_COMPANY-US202104007633

PATIENT
  Sex: Female

DRUGS (1)
  1. BASAGLAR [Suspect]
     Active Substance: INSULIN GLARGINE
     Indication: PRODUCT USED FOR UNKNOWN INDICATION
     Dosage: 30 U, DAILY (AT NIGHT)
     Route: 065
     Dates: start: 2020

REACTIONS (4)
  - Injection site haemorrhage [Unknown]
  - Injection site laceration [Unknown]
  - Visual impairment [Unknown]
  - Injection site bruising [Unknown]
